FAERS Safety Report 17728445 (Version 1)
Quarter: 2020Q2

REPORT INFORMATION
  Report Type: Spontaneous
  Country: TW (occurrence: TW)
  Receive Date: 20200430
  Receipt Date: 20200430
  Transmission Date: 20200714
  Serious: Yes (Death, Other)
  Sender: FDA-Public Use
  Company Number: TW-009507513-2004TWN008745

PATIENT
  Age: 37 Year
  Sex: Male

DRUGS (1)
  1. PREVYMIS [Suspect]
     Active Substance: LETERMOVIR

REACTIONS (3)
  - Cytomegalovirus infection reactivation [Fatal]
  - Neutrophil count abnormal [Unknown]
  - Platelet count abnormal [Unknown]
